FAERS Safety Report 6662388-0 (Version None)
Quarter: 2010Q1

REPORT INFORMATION
  Report Type: 
  Country: None (occurrence: None)
  Receive Date: 20100331
  Receipt Date: 20100322
  Transmission Date: 20100710
  Serious: Yes (Other)
  Sender: FDA-Public Use
  Company Number: BR-ELI_LILLY_AND_COMPANY-BR201003005906

PATIENT
  Sex: Male
  Weight: 52 kg

DRUGS (3)
  1. ZYPREXA [Suspect]
     Indication: AUTISM
     Dosage: 5 MG, DAILY (1/D)
     Route: 048
  2. AZITHROMYCIN [Concomitant]
     Indication: ALLERGIC RESPIRATORY DISEASE
     Dosage: UNK, UNKNOWN
     Route: 065
  3. FLUOXETINA [Concomitant]
     Dosage: UNK, DAILY (1/D)
     Route: 065

REACTIONS (6)
  - AGGRESSION [None]
  - DYSTONIA [None]
  - IMPULSIVE BEHAVIOUR [None]
  - LIMB DEFORMITY [None]
  - OFF LABEL USE [None]
  - REPETITIVE SPEECH [None]
